FAERS Safety Report 11353240 (Version 1)
Quarter: 2015Q3

REPORT INFORMATION
  Report Type: Spontaneous
  Country: US (occurrence: US)
  Receive Date: 20150807
  Receipt Date: 20150807
  Transmission Date: 20151125
  Serious: No
  Sender: FDA-Public Use
  Company Number: US-JNJFOC-20150104908

PATIENT
  Age: 29 Year
  Sex: Male
  Weight: 77.11 kg

DRUGS (2)
  1. MENS ROGAINE EXTRA STRENGTH [Suspect]
     Active Substance: MINOXIDIL
     Route: 061
  2. MENS ROGAINE EXTRA STRENGTH [Suspect]
     Active Substance: MINOXIDIL
     Indication: ALOPECIA
     Dosage: HALF A CAPFUL
     Route: 061
     Dates: end: 20141214

REACTIONS (9)
  - Drug ineffective [Unknown]
  - Alopecia [Unknown]
  - Sleep disorder [Recovering/Resolving]
  - Libido decreased [Unknown]
  - Heart rate increased [Unknown]
  - Erectile dysfunction [Unknown]
  - Semen viscosity abnormal [Unknown]
  - Eye swelling [Recovered/Resolved]
  - Weight increased [Recovering/Resolving]

NARRATIVE: CASE EVENT DATE: 201405
